FAERS Safety Report 10241094 (Version 1)
Quarter: 2014Q2

REPORT INFORMATION
  Report Type: Spontaneous
  Country: FR (occurrence: FR)
  Receive Date: 20140617
  Receipt Date: 20140617
  Transmission Date: 20141212
  Serious: Yes (Hospitalization)
  Sender: FDA-Public Use
  Company Number: FR-UCBSA-2014000812

PATIENT
  Age: 60 Year
  Sex: Male
  Weight: 73 kg

DRUGS (9)
  1. CIMZIA [Suspect]
     Dosage: 200 MG, EV 2 WEEKS(QOW)
     Route: 058
     Dates: start: 201306, end: 201401
  2. RIFINAH [Suspect]
     Dosage: 2 DF, ONCE DAILY (QD)
     Route: 048
     Dates: start: 20130527, end: 20130619
  3. METOJECT [Concomitant]
     Dosage: 20 MG, WEEKLY (QW)
     Dates: end: 201402
  4. SPECIAFOLDINE [Concomitant]
     Dosage: 5 MG, 2X/DAY (BID)
  5. CORTANCYL [Concomitant]
     Dosage: 8 MG, ONCE DAILY (QD)
     Dates: end: 20140402
  6. INEXIUM [Concomitant]
     Dosage: 20, 1/DAY
  7. CARDENSIEL [Concomitant]
     Dosage: 1.25, 1/DAY
  8. PLAVIX [Concomitant]
     Dosage: 75  1/DAY
  9. TAHOR [Concomitant]
     Dosage: 40 MG, 2X/DAY (BID)

REACTIONS (1)
  - Pulmonary tuberculosis [Recovering/Resolving]
